FAERS Safety Report 16969516 (Version 1)
Quarter: 2019Q4

REPORT INFORMATION
  Report Type: Spontaneous
  Country: AU (occurrence: AU)
  Receive Date: 20191029
  Receipt Date: 20191029
  Transmission Date: 20200122
  Serious: Yes (Other)
  Sender: FDA-Public Use
  Company Number: AU-PFIZER INC-2019459360

PATIENT
  Age: 44 Year
  Sex: Male

DRUGS (1)
  1. ZELDOX [Suspect]
     Active Substance: ZIPRASIDONE
     Indication: BIPOLAR DISORDER
     Dosage: 80 MG, 2X/DAY

REACTIONS (2)
  - Therapeutic response decreased [Unknown]
  - Renal impairment [Unknown]
